FAERS Safety Report 8708984 (Version 2)
Quarter: 2012Q4

REPORT INFORMATION
  Report Type: 
  Country: US (occurrence: US)
  Receive Date: 20120806
  Receipt Date: 20121101
  Transmission Date: 20130627
  Serious: Yes (Hospitalization, Other)
  Sender: FDA-Public Use
  Company Number: US-PFIZER INC-2012187048

PATIENT
  Age: 51 Year
  Sex: Male

DRUGS (5)
  1. CHANTIX [Suspect]
     Indication: SMOKING CESSATION THERAPY
     Dosage: starter kit, UNK
     Dates: start: 20090423, end: 200905
  2. PRILOSEC [Concomitant]
     Indication: HIATUS HERNIA
     Dosage: UNK
     Dates: start: 200610
  3. PRILOSEC [Concomitant]
     Indication: REFLUX ESOPHAGITIS
  4. LORTAB [Concomitant]
     Indication: PAIN
     Dosage: UNK
     Dates: start: 200706
  5. CELEBREX [Concomitant]
     Indication: PAIN
     Dosage: UNK
     Dates: start: 199912, end: 200907

REACTIONS (33)
  - Loss of consciousness [Unknown]
  - Road traffic accident [Unknown]
  - Hip fracture [Unknown]
  - Osteonecrosis [Unknown]
  - Pneumonia [Unknown]
  - Injury [Unknown]
  - Joint dislocation [Unknown]
  - Tibia fracture [Unknown]
  - Foot fracture [Unknown]
  - Hand fracture [Unknown]
  - Wrist fracture [Unknown]
  - Amnesia [Unknown]
  - Confusional state [Unknown]
  - Muscle atrophy [Unknown]
  - Osteoarthritis [Unknown]
  - Limb injury [Unknown]
  - Mobility decreased [Unknown]
  - Gait disturbance [Unknown]
  - Joint range of motion decreased [Unknown]
  - Activities of daily living impaired [Unknown]
  - Muscle spasms [Not Recovered/Not Resolved]
  - Fibromyalgia [Unknown]
  - Neuralgia [Unknown]
  - Weight increased [Unknown]
  - Sleep disorder [Unknown]
  - Pain [Not Recovered/Not Resolved]
  - Radiculopathy [Not Recovered/Not Resolved]
  - Erectile dysfunction [Not Recovered/Not Resolved]
  - Emotional distress [Not Recovered/Not Resolved]
  - Ligament rupture [Unknown]
  - Depression [Not Recovered/Not Resolved]
  - Anxiety [Not Recovered/Not Resolved]
  - Dyspareunia [Not Recovered/Not Resolved]
